FAERS Safety Report 20058737 (Version 2)
Quarter: 2021Q4

REPORT INFORMATION
  Report Type: Spontaneous
  Country: AR (occurrence: AR)
  Receive Date: 20211111
  Receipt Date: 20211122
  Transmission Date: 20220303
  Serious: Yes (Life-Threatening, Hospitalization, Other)
  Sender: FDA-Public Use
  Company Number: AR-MLMSERVICE-20211102-3193408-1

PATIENT
  Age: 85 Year
  Sex: Female

DRUGS (3)
  1. HYDROCORTISONE SODIUM SUCCINATE [Interacting]
     Active Substance: HYDROCORTISONE SODIUM SUCCINATE
     Indication: Adrenal insufficiency
     Dosage: 10 MG, 1X/DAY
  2. MODAFINIL [Interacting]
     Active Substance: MODAFINIL
     Indication: Apathy
     Dosage: 100 MG, 1X/DAY
  3. LEVOTHYROXINE [Concomitant]
     Active Substance: LEVOTHYROXINE
     Dosage: 50 UG, 1X/DAY

REACTIONS (5)
  - Drug interaction [Recovering/Resolving]
  - Hypotension [Recovering/Resolving]
  - Adrenocortical insufficiency acute [Recovering/Resolving]
  - Hyponatraemia [Recovered/Resolved]
  - Metabolic encephalopathy [Recovering/Resolving]
